FAERS Safety Report 23985752 (Version 1)
Quarter: 2024Q2

REPORT INFORMATION
  Report Type: Spontaneous
  Country: JP (occurrence: JP)
  Receive Date: 20240618
  Receipt Date: 20240618
  Transmission Date: 20240716
  Serious: Yes (Other)
  Sender: FDA-Public Use
  Company Number: JP-ELI_LILLY_AND_COMPANY-JP202312009578AA

PATIENT
  Age: 57 Year
  Sex: Male
  Weight: 61 kg

DRUGS (10)
  1. NECITUMUMAB [Suspect]
     Active Substance: NECITUMUMAB
     Indication: Lung squamous cell carcinoma stage IV
     Dosage: 800 MG
     Route: 041
     Dates: start: 20231025, end: 20240117
  2. GEMZAR [Suspect]
     Active Substance: GEMCITABINE HYDROCHLORIDE
     Indication: Lung squamous cell carcinoma stage IV
     Dosage: 2200 MG
     Route: 041
     Dates: start: 20231025, end: 20240117
  3. CISPLATIN [Suspect]
     Active Substance: CISPLATIN
     Indication: Lung squamous cell carcinoma stage IV
     Dosage: 130 MG
     Route: 041
     Dates: start: 20231025, end: 20240117
  4. MAGNESIUM SULFATE HEPTAHYDRATE [Concomitant]
     Active Substance: MAGNESIUM SULFATE HEPTAHYDRATE
     Indication: Electrolyte substitution therapy
     Dosage: UNK
     Route: 041
     Dates: start: 20231025, end: 20240117
  5. MAGNESIUM SULFATE HEPTAHYDRATE [Concomitant]
     Active Substance: MAGNESIUM SULFATE HEPTAHYDRATE
     Indication: Lung squamous cell carcinoma stage IV
  6. PALONOSETRON HYDROCHLORIDE [Concomitant]
     Active Substance: PALONOSETRON HYDROCHLORIDE
     Indication: Lung squamous cell carcinoma stage IV
     Dosage: UNK
     Route: 041
     Dates: start: 20231025, end: 20240117
  7. DEXAMETHASONE SODIUM PHOSPHATE [Concomitant]
     Active Substance: DEXAMETHASONE PHOSPHATE\DEXAMETHASONE SODIUM PHOSPHATE
     Indication: Lung squamous cell carcinoma stage IV
     Dosage: UNK
     Route: 041
     Dates: start: 20231025, end: 20240117
  8. FOSNETUPITANT CHLORIDE HYDROCHLORIDE [Concomitant]
     Active Substance: FOSNETUPITANT CHLORIDE HYDROCHLORIDE
     Indication: Lung squamous cell carcinoma stage IV
     Dosage: UNK
     Route: 041
     Dates: start: 20231025, end: 20240117
  9. MANNITOL\SORBITOL [Concomitant]
     Active Substance: MANNITOL\SORBITOL
     Indication: Lung squamous cell carcinoma stage IV
     Dosage: UNK
     Route: 041
     Dates: start: 20231025, end: 20240117
  10. GRANISETRON HYDROCHLORIDE [Concomitant]
     Active Substance: GRANISETRON HYDROCHLORIDE
     Indication: Lung squamous cell carcinoma stage IV
     Dosage: UNK
     Route: 041
     Dates: start: 20231101, end: 20231220

REACTIONS (3)
  - Skin necrosis [Unknown]
  - Dermal cyst [Recovering/Resolving]
  - Dermatitis acneiform [Recovered/Resolved]

NARRATIVE: CASE EVENT DATE: 20231107
